FAERS Safety Report 21019219 (Version 3)
Quarter: 2022Q3

REPORT INFORMATION
  Report Type: Spontaneous
  Country: CA (occurrence: CA)
  Receive Date: 20220628
  Receipt Date: 20220802
  Transmission Date: 20221026
  Serious: Yes (Other)
  Sender: FDA-Public Use
  Company Number: CA-PFIZER INC-202200902023

PATIENT
  Age: 48 Year
  Sex: Female
  Weight: 90.7 kg

DRUGS (3)
  1. METHOTREXATE SODIUM [Suspect]
     Active Substance: METHOTREXATE SODIUM
     Dosage: 1 DF, DOSAGE INFO: UNKNOWN
     Route: 065
  2. ENTYVIO [Concomitant]
     Active Substance: VEDOLIZUMAB
     Dosage: UNK, ESCALATED ENTYVIO DOSING
  3. INFLECTRA [Concomitant]
     Active Substance: INFLIXIMAB-DYYB
     Indication: Crohn^s disease
     Dosage: 500 MG, Q 0,2,6 WEEKS, THEN EVERY 8 WEEKS.
     Route: 042
     Dates: start: 20220726

REACTIONS (8)
  - Anal fistula [Not Recovered/Not Resolved]
  - Haemorrhage [Not Recovered/Not Resolved]
  - Condition aggravated [Unknown]
  - Pain [Not Recovered/Not Resolved]
  - Drainage [Not Recovered/Not Resolved]
  - Aphthous ulcer [Unknown]
  - Condition aggravated [Not Recovered/Not Resolved]
  - Arthralgia [Unknown]

NARRATIVE: CASE EVENT DATE: 20220101
